FAERS Safety Report 23789451 (Version 1)
Quarter: 2024Q2

REPORT INFORMATION
  Report Type: Spontaneous
  Country: US (occurrence: None)
  Receive Date: 20240425
  Receipt Date: 20240425
  Transmission Date: 20240716
  Serious: Yes (Death)
  Sender: FDA-Public Use
  Company Number: None

PATIENT
  Age: 10 Year
  Sex: Male

DRUGS (11)
  1. IWILFIN [Suspect]
     Active Substance: EFLORNITHINE HYDROCHLORIDE
     Indication: Adrenal gland cancer
     Dosage: FREQUENCY : TWICE A DAY;?
     Route: 048
     Dates: start: 20240205, end: 20240411
  2. Etoposide 50 [Concomitant]
  3. Dronabinol 2.5 [Concomitant]
  4. SCOPOLAMINE TRANDERMAL SYSTEM [Concomitant]
     Active Substance: SCOPOLAMINE
  5. Lactulose 10Gm /15ml [Concomitant]
  6. Metoclopramide 5 [Concomitant]
  7. Keppra 500 [Concomitant]
  8. Methadone 5 [Concomitant]
  9. MAGNESIUM OXIDE [Concomitant]
     Active Substance: MAGNESIUM OXIDE
  10. Pepcid 20 mg [Concomitant]
  11. Dexamethasone 6 mg [Concomitant]

REACTIONS (1)
  - Death [None]
